FAERS Safety Report 14193580 (Version 4)
Quarter: 2018Q2

REPORT INFORMATION
  Report Type: Spontaneous
  Country: FR (occurrence: FR)
  Receive Date: 20171116
  Receipt Date: 20180525
  Transmission Date: 20180711
  Serious: Yes (Hospitalization)
  Sender: FDA-Public Use
  Company Number: FR-ROCHE-2021219

PATIENT
  Age: 66 Year
  Sex: Male

DRUGS (6)
  1. ZELITREX [Suspect]
     Active Substance: VALACYCLOVIR HYDROCHLORIDE
     Dosage: 500 MG, Q4HR
     Route: 048
     Dates: start: 20170913
  2. ZYDELIG [Suspect]
     Active Substance: IDELALISIB
     Indication: CHRONIC LYMPHOCYTIC LEUKAEMIA
     Route: 048
     Dates: start: 201701, end: 20170329
  3. BACTRIM [Suspect]
     Active Substance: SULFAMETHOXAZOLE\TRIMETHOPRIM
     Indication: INFECTION PROPHYLAXIS
     Dosage: LONG TERM
     Route: 048
     Dates: end: 20170622
  4. RITUXIMAB. [Suspect]
     Active Substance: RITUXIMAB
     Dosage: FOR 2 MONTHS
     Route: 042
     Dates: start: 20170818
  5. ZELITREX [Suspect]
     Active Substance: VALACYCLOVIR HYDROCHLORIDE
     Indication: INFECTION PROPHYLAXIS
     Dosage: LONG TERM?500 MG
     Route: 048
     Dates: end: 20170622
  6. RITUXIMAB. [Suspect]
     Active Substance: RITUXIMAB
     Indication: CHRONIC LYMPHOCYTIC LEUKAEMIA
     Dosage: MAMMALIAN HAMSTER CHO CELLS
     Route: 042
     Dates: start: 201701, end: 20170329

REACTIONS (2)
  - Histiocytosis haematophagic [Recovered/Resolved]
  - Pancytopenia [Not Recovered/Not Resolved]

NARRATIVE: CASE EVENT DATE: 20170421
